FAERS Safety Report 9097765 (Version 2)
Quarter: 2013Q2

REPORT INFORMATION
  Report Type: Spontaneous
  Country: FR (occurrence: FR)
  Receive Date: 20130212
  Receipt Date: 20130507
  Transmission Date: 20140414
  Serious: Yes (Hospitalization)
  Sender: FDA-Public Use
  Company Number: FR-ROCHE-1188873

PATIENT
  Age: 52 Year
  Sex: Female

DRUGS (4)
  1. ROACTEMRA [Suspect]
     Indication: RHEUMATOID ARTHRITIS
     Route: 041
     Dates: start: 20090812, end: 20130103
  2. ZECLAR [Suspect]
     Indication: BRONCHITIS
     Route: 048
     Dates: start: 20121227, end: 20130101
  3. METHOTREXATE [Concomitant]
     Indication: RHEUMATOID ARTHRITIS
     Route: 048
  4. SPECIAFOLDINE [Concomitant]
     Indication: FOLATE DEFICIENCY
     Route: 048

REACTIONS (4)
  - Hypotension [Recovered/Resolved]
  - Rash papular [Recovering/Resolving]
  - Dyspnoea [Recovering/Resolving]
  - Palatal oedema [Recovering/Resolving]
